FAERS Safety Report 6204551-9 (Version None)
Quarter: 2009Q2

REPORT INFORMATION
  Report Type: 
  Country: None (occurrence: None)
  Receive Date: 20090522
  Receipt Date: 20090508
  Transmission Date: 20091009
  Serious: Yes (Hospitalization)
  Sender: FDA-Public Use
  Company Number: 234360K09USA

PATIENT
  Age: 45 Year
  Sex: Female

DRUGS (7)
  1. REBIF [Suspect]
     Indication: MULTIPLE SCLEROSIS
     Dosage: 44 MCG, 3 IN 1 WEEKS, SUBCUTANEOUS
     Route: 058
     Dates: start: 20080917
  2. XANAX [Suspect]
     Indication: ANXIETY
     Dosage: 0.5 MG, AS REQUIRED
  3. AMBIEN [Suspect]
     Indication: INSOMNIA
  4. FUROSEMIDE (FUROSEMIDE /00032601/) [Concomitant]
  5. SYNTHROID [Concomitant]
  6. VYTORIN [Concomitant]
  7. TRICOR [Concomitant]

REACTIONS (2)
  - DEPRESSION [None]
  - LOSS OF CONSCIOUSNESS [None]
